FAERS Safety Report 4457678-6 (Version None)
Quarter: 2004Q3

REPORT INFORMATION
  Report Type: 
  Country: None (occurrence: None)
  Receive Date: 20040922
  Receipt Date: 20040902
  Transmission Date: 20050211
  Serious: Yes (Death, Life-Threatening, Hospitalization)
  Sender: FDA-Public Use
  Company Number: JP_030801524

PATIENT
  Age: 45 Year
  Sex: Male
  Weight: 63 kg

DRUGS (5)
  1. GEMZAR [Suspect]
     Indication: PANCREATIC CARCINOMA
     Dosage: 1776 MG OTHER
     Route: 050
     Dates: start: 20030722, end: 20030729
  2. CISPLATIN [Concomitant]
  3. UROSOSAN (URSODEOXYCHOLIC ACID) [Concomitant]
  4. SULPERAZON [Concomitant]
  5. NOVAMIN (PROCHLORPERAZINE) [Concomitant]

REACTIONS (12)
  - ANOREXIA [None]
  - FATIGUE [None]
  - FEBRILE NEUTROPENIA [None]
  - HEPATIC FAILURE [None]
  - PANCYTOPENIA [None]
  - PHARYNGOLARYNGEAL PAIN [None]
  - PRURITUS [None]
  - PURPURA [None]
  - RASH [None]
  - REFUSAL OF TREATMENT BY PATIENT [None]
  - STOMATITIS [None]
  - TOXIC SKIN ERUPTION [None]
